FAERS Safety Report 4880076-8 (Version None)
Quarter: 2005Q4

REPORT INFORMATION
  Report Type: 
  Country: None (occurrence: None)
  Receive Date: 20051223
  Receipt Date: 20051122
  Transmission Date: 20060501
  Serious: No
  Sender: FDA-Public Use
  Company Number: 05P-163-0310700-00

PATIENT
  Age: 74 Year
  Sex: Female
  Weight: 61.6892 kg

DRUGS (10)
  1. HUMIRA [Suspect]
     Indication: RHEUMATOID ARTHRITIS
     Dosage: 40 MG, 1 IN 2 WK, SUBCUTANEOUS ; 40 MG, 1 IN 10 D, SUBCUTANEOUS ; 40 MG, 1 IN 10 D, SUBCUTANEOUS
     Route: 058
     Dates: start: 20031201, end: 20050601
  2. HUMIRA [Suspect]
     Indication: RHEUMATOID ARTHRITIS
     Dosage: 40 MG, 1 IN 2 WK, SUBCUTANEOUS ; 40 MG, 1 IN 10 D, SUBCUTANEOUS ; 40 MG, 1 IN 10 D, SUBCUTANEOUS
     Route: 058
     Dates: start: 20050601, end: 20050701
  3. HUMIRA [Suspect]
     Indication: RHEUMATOID ARTHRITIS
     Dosage: 40 MG, 1 IN 2 WK, SUBCUTANEOUS ; 40 MG, 1 IN 10 D, SUBCUTANEOUS ; 40 MG, 1 IN 10 D, SUBCUTANEOUS
     Route: 058
     Dates: start: 20050801
  4. METHOTREXATE [Concomitant]
  5. SALBUTAMOL [Concomitant]
  6. ERGOCALCIFEROL [Concomitant]
  7. FUROSEMIDE [Concomitant]
  8. SERTRALINE HYDROCHLORIDE [Concomitant]
  9. FELODEPINE [Concomitant]
  10. ASCORBIC ACID [Concomitant]

REACTIONS (2)
  - BASAL CELL CARCINOMA [None]
  - RHEUMATOID ARTHRITIS [None]
